FAERS Safety Report 18855068 (Version 1)
Quarter: 2021Q1

REPORT INFORMATION
  Report Type: Spontaneous
  Country: US (occurrence: US)
  Receive Date: 20210205
  Receipt Date: 20210205
  Transmission Date: 20210420
  Serious: No
  Sender: FDA-Public Use
  Company Number: US-TEVA-2021-US-1868321

PATIENT
  Sex: Male

DRUGS (1)
  1. AJOVY [Suspect]
     Active Substance: FREMANEZUMAB-VFRM
     Dosage: AJOVY,225 MG / 1.5 ML
     Route: 065

REACTIONS (3)
  - Device delivery system issue [Unknown]
  - Accidental exposure to product [Unknown]
  - Incorrect route of product administration [Unknown]
